FAERS Safety Report 17118786 (Version 2)
Quarter: 2022Q4

REPORT INFORMATION
  Report Type: Spontaneous
  Country: DE (occurrence: DE)
  Receive Date: 20191206
  Receipt Date: 20221123
  Transmission Date: 20230113
  Serious: Yes (Other)
  Sender: FDA-Public Use
  Company Number: DE-EMA-DD-20191121-KUMARVN_P-104217

PATIENT
  Age: 55 Year
  Sex: Female

DRUGS (2)
  1. TENOFOVIR [Suspect]
     Active Substance: TENOFOVIR
     Indication: Chronic hepatitis B
     Dosage: 245 MILLIGRAM, UNK
     Route: 065
     Dates: start: 20170428
  2. ZEPATIER [Suspect]
     Active Substance: ELBASVIR\GRAZOPREVIR
     Indication: Chronic hepatitis C
     Dosage: 150 MILLIGRAM, QD
     Route: 065
     Dates: start: 20170307, end: 20170529

REACTIONS (1)
  - Acute hepatitis B [Recovered/Resolved]

NARRATIVE: CASE EVENT DATE: 20170428
